FAERS Safety Report 20923146 (Version 1)
Quarter: 2022Q2

REPORT INFORMATION
  Report Type: Spontaneous
  Country: SE (occurrence: SE)
  Receive Date: 20220607
  Receipt Date: 20220607
  Transmission Date: 20220721
  Serious: Yes (Life-Threatening, Hospitalization, Other)
  Sender: FDA-Public Use
  Company Number: None

PATIENT
  Age: 67 Year
  Sex: Female
  Weight: 73 kg

DRUGS (4)
  1. LENALIDOMIDE [Suspect]
     Active Substance: LENALIDOMIDE
     Indication: Stem cell transplant
     Route: 048
     Dates: start: 20180412, end: 20220223
  2. Pulmicort Turbuhaler 400 mikrogram/dos Inhalationspulver [Concomitant]
     Indication: Product used for unknown indication
     Route: 055
     Dates: start: 20170501
  3. Spiriva Respimat 2,5 mikrogram per puff Inhalationsv?tska, l?sning [Concomitant]
     Indication: Product used for unknown indication
     Dosage: 2,5 MIKROGRAM PER PUFF 2X1
     Route: 055
     Dates: start: 20080101
  4. Calcichew-D3 Citron 500 mg/800 IE Tuggtablett [Concomitant]
     Indication: Product used for unknown indication
     Route: 048
     Dates: start: 20170101

REACTIONS (1)
  - Malignant melanoma [Not Recovered/Not Resolved]

NARRATIVE: CASE EVENT DATE: 20211208
